FAERS Safety Report 5288742-X (Version None)
Quarter: 2007Q2

REPORT INFORMATION
  Report Type: 
  Country: None (occurrence: None)
  Receive Date: 20070405
  Receipt Date: 20070330
  Transmission Date: 20071010
  Serious: Yes (Other)
  Sender: FDA-Public Use
  Company Number: FR-BOEHRINGER INGELHEIM PHARMACEUTICALS, INC.-2007-FF-00159FF

PATIENT
  Sex: Male
  Weight: 84 kg

DRUGS (3)
  1. SPIRIVA [Suspect]
     Indication: CHRONIC OBSTRUCTIVE PULMONARY DISEASE
     Route: 055
     Dates: start: 20060705, end: 20060718
  2. SERETIDE [Concomitant]
  3. DIURETIC [Concomitant]

REACTIONS (2)
  - ANURIA [None]
  - URINARY RETENTION [None]
